FAERS Safety Report 8846485 (Version 2)
Quarter: 2012Q4

REPORT INFORMATION
  Report Type: 
  Country: US (occurrence: US)
  Receive Date: 20121017
  Receipt Date: 20121109
  Transmission Date: 20130627
  Serious: Yes (Hospitalization)
  Sender: FDA-Public Use
  Company Number: US-US-EMD SERONO, INC.-7164844

PATIENT
  Sex: Male

DRUGS (3)
  1. REBIF [Suspect]
     Indication: MULTIPLE SCLEROSIS
     Route: 058
     Dates: start: 20020620
  2. REBIF [Suspect]
     Route: 058
     Dates: start: 201209, end: 201209
  3. BACLOFEN PUMP [Concomitant]
     Indication: MUSCLE SPASTICITY

REACTIONS (8)
  - Urinary tract infection [Recovered/Resolved]
  - Muscle spasticity [Recovered/Resolved]
  - Neurogenic bladder [Unknown]
  - Cold sweat [Recovered/Resolved]
  - Peripheral coldness [Recovered/Resolved]
  - Sensation of pressure [Not Recovered/Not Resolved]
  - Pain in extremity [Recovered/Resolved]
  - Erythema [Unknown]
